FAERS Safety Report 9399498 (Version 1)
Quarter: 2013Q3

REPORT INFORMATION
  Report Type: Spontaneous
  Country: US (occurrence: US)
  Receive Date: 20130715
  Receipt Date: 20130715
  Transmission Date: 20140515
  Serious: No
  Sender: FDA-Public Use
  Company Number: US-BIOGENIDEC-2013BI062633

PATIENT
  Age: 44 Year
  Sex: Female

DRUGS (1)
  1. AVONEX [Suspect]
     Indication: MULTIPLE SCLEROSIS
     Route: 030
     Dates: start: 20040109

REACTIONS (5)
  - Limb injury [Recovered/Resolved]
  - Laceration [Recovered/Resolved]
  - Hypoaesthesia [Unknown]
  - Skin lesion [Not Recovered/Not Resolved]
  - Grip strength decreased [Unknown]
